FAERS Safety Report 4980615-2 (Version None)
Quarter: 2006Q2

REPORT INFORMATION
  Report Type: 
  Country: None (occurrence: None)
  Receive Date: 20060424
  Receipt Date: 20060324
  Transmission Date: 20061013
  Serious: Yes (Hospitalization)
  Sender: FDA-Public Use
  Company Number: JP-ROCHE-441670

PATIENT
  Age: 60 Year
  Sex: Male

DRUGS (7)
  1. PANALDINE [Suspect]
     Indication: THROMBOSIS PROPHYLAXIS
     Route: 048
     Dates: start: 20060130, end: 20060313
  2. MEVALOTIN [Suspect]
     Route: 048
     Dates: end: 20060313
  3. NU-LOTAN [Concomitant]
     Indication: HYPERTENSION
     Route: 048
     Dates: start: 20060130
  4. ASPIRIN [Concomitant]
     Indication: ANGINA PECTORIS
     Route: 048
     Dates: start: 20060130
  5. SIGMART [Concomitant]
     Indication: ANGINA PECTORIS
     Route: 048
     Dates: start: 20060130
  6. TAKEPRON [Concomitant]
     Indication: REFLUX OESOPHAGITIS
     Route: 048
     Dates: start: 20060130
  7. FRANDOL [Concomitant]
     Route: 062

REACTIONS (6)
  - ACUTE MYOCARDIAL INFARCTION [None]
  - CONVULSION [None]
  - CYTOLYTIC HEPATITIS [None]
  - HEPATIC FUNCTION ABNORMAL [None]
  - LIVER DISORDER [None]
  - URTICARIA [None]
